FAERS Safety Report 6360020-7 (Version None)
Quarter: 2009Q3

REPORT INFORMATION
  Report Type: 
  Country: None (occurrence: None)
  Receive Date: 20090917
  Receipt Date: 20090904
  Transmission Date: 20100115
  Serious: Yes (Other)
  Sender: FDA-Public Use
  Company Number: PHHY2009SE37753

PATIENT
  Sex: Male

DRUGS (1)
  1. TASIGNA [Suspect]
     Indication: CHRONIC LEUKAEMIA

REACTIONS (4)
  - ANGINA PECTORIS [None]
  - CHEST PAIN [None]
  - CORONARY ARTERY DILATATION [None]
  - CORONARY ARTERY STENOSIS [None]
